FAERS Safety Report 20629037 (Version 2)
Quarter: 2022Q1

REPORT INFORMATION
  Report Type: Spontaneous
  Country: VN (occurrence: VN)
  Receive Date: 20220323
  Receipt Date: 20220325
  Transmission Date: 20220423
  Serious: Yes (Death)
  Sender: FDA-Public Use
  Company Number: VN-ABBVIE-22K-179-4328178-00

PATIENT
  Age: 33 Year
  Sex: Female

DRUGS (2)
  1. SEVOFLURANE [Suspect]
     Active Substance: SEVOFLURANE
     Indication: Maintenance of anaesthesia
     Route: 055
     Dates: start: 20220318, end: 20220318
  2. PROPOFOL [Concomitant]
     Active Substance: PROPOFOL
     Indication: Induction of anaesthesia
     Route: 042
     Dates: start: 20220318, end: 20220318

REACTIONS (3)
  - Lung perforation [Fatal]
  - Pneumothorax [Fatal]
  - Pneumomediastinum [Fatal]

NARRATIVE: CASE EVENT DATE: 20220318
